FAERS Safety Report 22539915 (Version 1)
Quarter: 2023Q2

REPORT INFORMATION
  Report Type: Report from Study
  Country: GT (occurrence: GT)
  Receive Date: 20230609
  Receipt Date: 20230609
  Transmission Date: 20230721
  Serious: Yes (Hospitalization, Other)
  Sender: FDA-Public Use
  Company Number: GT-002147023-NVSC2023GT130090

PATIENT
  Sex: Female

DRUGS (2)
  1. EXFORGE HCT [Suspect]
     Active Substance: AMLODIPINE BESYLATE\HYDROCHLOROTHIAZIDE\VALSARTAN
     Indication: Hypertension
     Dosage: UNK UNK, QD (5/160/12.5 MG, VIA MOUTH)
     Route: 048
     Dates: start: 2008
  2. METFORMIN HYDROCHLORIDE\VILDAGLIPTIN [Suspect]
     Active Substance: METFORMIN HYDROCHLORIDE\VILDAGLIPTIN
     Indication: Diabetes mellitus
     Dosage: UNK UNK, QD (50/1000 MG, VIA MOUTH)
     Route: 048
     Dates: start: 2018, end: 2020

REACTIONS (4)
  - Breast cancer [Unknown]
  - Arthralgia [Not Recovered/Not Resolved]
  - Diabetes mellitus [Unknown]
  - Neuropathy peripheral [Unknown]

NARRATIVE: CASE EVENT DATE: 20200101
